FAERS Safety Report 19728828 (Version 1)
Quarter: 2021Q3

REPORT INFORMATION
  Report Type: Spontaneous
  Country: US (occurrence: US)
  Receive Date: 20210820
  Receipt Date: 20210820
  Transmission Date: 20211014
  Serious: Yes (Hospitalization)
  Sender: FDA-Public Use
  Company Number: US-PFIZER INC-202101035795

PATIENT
  Age: 84 Year
  Sex: Male

DRUGS (1)
  1. VYNDAMAX [Suspect]
     Active Substance: TAFAMIDIS
     Dosage: 61 MG, 2X/DAY
     Route: 048
     Dates: start: 20210211

REACTIONS (6)
  - Contusion [Unknown]
  - Lacrimation increased [Unknown]
  - COVID-19 [Unknown]
  - Product dose omission issue [Unknown]
  - Sensitive skin [Unknown]
  - Intentional overdose [Unknown]
